FAERS Safety Report 5325353-1 (Version None)
Quarter: 2007Q2

REPORT INFORMATION
  Report Type: 
  Country: None (occurrence: None)
  Receive Date: 20070515
  Receipt Date: 20070511
  Transmission Date: 20071010
  Serious: Yes (Other)
  Sender: FDA-Public Use
  Company Number: US-BRISTOL-MYERS SQUIBB COMPANY-13778071

PATIENT
  Age: 94 Year
  Sex: Female

DRUGS (10)
  1. TEQUIN [Suspect]
     Indication: URINARY TRACT INFECTION
     Route: 048
     Dates: start: 20040101
  2. NEURONTIN [Concomitant]
     Indication: DEMENTIA
     Route: 048
     Dates: start: 20040101
  3. ZYPREXA [Concomitant]
     Indication: DEMENTIA
     Route: 048
     Dates: start: 20040101
  4. REMERON [Concomitant]
     Indication: DEMENTIA
     Route: 048
     Dates: start: 20040101
  5. DIGOXIN [Concomitant]
     Indication: ATRIAL FIBRILLATION
     Route: 048
     Dates: start: 20040101
  6. TRUSOPT [Concomitant]
     Indication: GLAUCOMA
     Route: 047
  7. LANTUS [Concomitant]
     Indication: DIABETES MELLITUS
     Dosage: FOLLOW INSULIN SLIDING SCALE PROTOCOL
     Route: 051
  8. LISINOPRIL [Concomitant]
     Indication: HYPERTENSION
     Route: 048
  9. PERCOCET TABS 5 MG/325 MG [Concomitant]
     Indication: BREAKTHROUGH PAIN
  10. ASPIRIN [Concomitant]
     Indication: ATRIAL FIBRILLATION
     Route: 048

REACTIONS (1)
  - DIABETES MELLITUS [None]
